FAERS Safety Report 11275407 (Version 3)
Quarter: 2015Q4

REPORT INFORMATION
  Report Type: Spontaneous
  Country: FR (occurrence: FR)
  Receive Date: 20150716
  Receipt Date: 20151101
  Transmission Date: 20160304
  Serious: Yes (Hospitalization)
  Sender: FDA-Public Use
  Company Number: FR-ROCHE-1608665

PATIENT
  Age: 14 Year
  Sex: Female
  Weight: 55 kg

DRUGS (8)
  1. SEREVENT DISKUS [Concomitant]
     Active Substance: SALMETEROL XINAFOATE
  2. XOLAIR [Suspect]
     Active Substance: OMALIZUMAB
     Indication: ASTHMA
     Route: 058
     Dates: start: 20150603
  3. SERETIDE [Concomitant]
     Active Substance: FLUTICASONE FUROATE\SALMETEROL XINAFOATE
  4. VENTOLINE [Concomitant]
     Active Substance: ALBUTEROL
  5. PULMICORT TURBUHALER [Concomitant]
     Active Substance: BUDESONIDE
  6. XOLAIR [Suspect]
     Active Substance: OMALIZUMAB
     Route: 058
     Dates: start: 20150617
  7. AERIUS [Concomitant]
     Active Substance: DESLORATADINE
  8. XOLAIR [Suspect]
     Active Substance: OMALIZUMAB
     Route: 058
     Dates: start: 20150703

REACTIONS (6)
  - Haemoglobin decreased [Unknown]
  - Asthenia [Recovered/Resolved]
  - Joint injury [Unknown]
  - Haematoma [Recovered/Resolved]
  - Pain [Unknown]
  - Arthritis [Not Recovered/Not Resolved]

NARRATIVE: CASE EVENT DATE: 20150603
